FAERS Safety Report 9330154 (Version 2)
Quarter: 2013Q3

REPORT INFORMATION
  Report Type: Spontaneous
  Country: US (occurrence: US)
  Receive Date: 20130604
  Receipt Date: 20130729
  Transmission Date: 20140515
  Serious: Yes (Hospitalization)
  Sender: FDA-Public Use
  Company Number: US-B.I. PHARMACEUTICALS,INC./RIDGEFIELD-2013-BI-15500BP

PATIENT
  Age: 57 Year
  Sex: Female
  Weight: 48 kg

DRUGS (14)
  1. SPIRIVA [Suspect]
     Indication: EMPHYSEMA
     Dosage: 18 MCG
     Route: 055
     Dates: start: 2010
  2. ATROVENT [Suspect]
     Indication: EMPHYSEMA
     Dosage: 102 MCG
     Route: 055
     Dates: start: 2010
  3. ALBUTEROL NEBULIZER [Concomitant]
     Indication: EMPHYSEMA
     Route: 055
  4. DILTIAZEM [Concomitant]
     Indication: ATRIAL FIBRILLATION
     Dosage: 180 MG
     Route: 048
  5. TAZTIA [Concomitant]
     Indication: ATRIAL FIBRILLATION
     Dosage: 360 MG
     Route: 048
  6. CRESTOR [Concomitant]
     Indication: BLOOD CHOLESTEROL INCREASED
     Dosage: 5 MG
     Route: 048
  7. PACERONE [Concomitant]
     Indication: ATRIAL FIBRILLATION
     Dosage: 200 MG
     Route: 048
  8. MAGNESIUM [Concomitant]
     Dosage: 400 MG
     Route: 048
  9. NEXIUM [Concomitant]
     Dosage: 20 MG
     Route: 048
  10. KLOR CON [Concomitant]
     Dosage: 20 MEQ
     Route: 048
  11. METFORMIN [Concomitant]
     Indication: DIABETES MELLITUS
     Dosage: 1000 MG
     Route: 048
  12. PREDNISONE [Concomitant]
     Indication: EMPHYSEMA
     Dosage: 5 MG
     Route: 048
  13. WARFARIN [Concomitant]
     Indication: ATRIAL FIBRILLATION
     Dosage: 5 MG
     Route: 048
  14. FUROSEMIDE [Concomitant]
     Indication: FLUID RETENTION
     Dosage: 40 MG
     Route: 048

REACTIONS (3)
  - Pneumonia [Recovered/Resolved]
  - Dyspnoea [Recovered/Resolved]
  - Fatigue [Not Recovered/Not Resolved]
